FAERS Safety Report 9990589 (Version 1)
Quarter: 2014Q1

REPORT INFORMATION
  Report Type: Report from Study
  Country: US (occurrence: US)
  Receive Date: 20140310
  Receipt Date: 20140310
  Transmission Date: 20141002
  Serious: No
  Sender: FDA-Public Use
  Company Number: US-ABBVIE-13P-163-1134653-00

PATIENT
  Age: 54 Year
  Sex: Male
  Weight: 104.42 kg

DRUGS (13)
  1. HUMIRA [Suspect]
     Indication: RHEUMATOID ARTHRITIS
     Dates: start: 20130607
  2. GEMFIBROZIL [Concomitant]
     Indication: BLOOD CHOLESTEROL INCREASED
  3. PRAVASTATIN [Concomitant]
     Indication: LOW DENSITY LIPOPROTEIN INCREASED
  4. PRAVASTATIN [Concomitant]
     Indication: BLOOD TRIGLYCERIDES INCREASED
  5. OXYCODONE [Concomitant]
     Indication: PAIN
  6. OXYCONTIN [Concomitant]
     Indication: PAIN
  7. LANSOPRAZOLE [Concomitant]
     Indication: GASTROOESOPHAGEAL REFLUX DISEASE
  8. HYDROXYCHLOR [Concomitant]
     Indication: RHEUMATOID ARTHRITIS
  9. ZOLOFT [Concomitant]
     Indication: ANXIETY
  10. ZOLOFT [Concomitant]
     Indication: DEPRESSION
  11. REQUIP [Concomitant]
     Indication: RESTLESS LEGS SYNDROME
  12. TRAZODONE [Concomitant]
     Indication: INSOMNIA
     Dosage: AT NIGHT
  13. PLAQUENIL [Concomitant]
     Indication: RHEUMATOID ARTHRITIS

REACTIONS (4)
  - Injection site haemorrhage [Not Recovered/Not Resolved]
  - Incorrect dose administered [Recovered/Resolved]
  - Device malfunction [Recovered/Resolved]
  - Injection site pain [Recovered/Resolved]
